FAERS Safety Report 17483477 (Version 2)
Quarter: 2020Q1

REPORT INFORMATION
  Report Type: Spontaneous
  Country: US (occurrence: US)
  Receive Date: 20200302
  Receipt Date: 20200303
  Transmission Date: 20200409
  Serious: Yes (Other)
  Sender: FDA-Public Use
  Company Number: US-ASTRAZENECA-2020SE29960

PATIENT
  Age: 67 Year
  Sex: Male

DRUGS (11)
  1. CRESTOR [Suspect]
     Active Substance: ROSUVASTATIN CALCIUM
     Route: 048
  2. VYSTOLIC [Concomitant]
  3. LANTUS [Concomitant]
     Active Substance: INSULIN GLARGINE
  4. BRILINTA [Suspect]
     Active Substance: TICAGRELOR
     Indication: STENT PLACEMENT
     Route: 048
     Dates: start: 201907, end: 202001
  5. ALBUTEROL. [Concomitant]
     Active Substance: ALBUTEROL
  6. LOSARTAN. [Concomitant]
     Active Substance: LOSARTAN
  7. TESSALIN [Concomitant]
  8. ENDUR [Concomitant]
  9. DECADRON [Concomitant]
     Active Substance: DEXAMETHASONE
  10. HUMALOG [Concomitant]
     Active Substance: INSULIN LISPRO
  11. BRILINTA [Suspect]
     Active Substance: TICAGRELOR
     Indication: ACUTE CORONARY SYNDROME
     Route: 048
     Dates: start: 201907, end: 202001

REACTIONS (3)
  - Thrombocytopenia [Recovering/Resolving]
  - Diabetes mellitus [Unknown]
  - Hypertension [Unknown]
